FAERS Safety Report 19583016 (Version 1)
Quarter: 2021Q3

REPORT INFORMATION
  Report Type: Spontaneous
  Country: GB (occurrence: GB)
  Receive Date: 20210719
  Receipt Date: 20210719
  Transmission Date: 20211014
  Serious: No
  Sender: FDA-Public Use
  Company Number: GB-MARKSANS PHARMA LIMITED-2114010

PATIENT
  Sex: Female

DRUGS (2)
  1. LORATADINE MOELCULE FROM UK MARKET [Suspect]
     Active Substance: LORATADINE
     Route: 048
  2. QVAR [Suspect]
     Active Substance: BECLOMETHASONE DIPROPIONATE

REACTIONS (1)
  - Rash [None]
